FAERS Safety Report 9858305 (Version 1)
Quarter: 2014Q1

REPORT INFORMATION
  Report Type: Spontaneous
  Country: FR (occurrence: None)
  Receive Date: 20140129
  Receipt Date: 20140129
  Transmission Date: 20141002
  Serious: Yes (Hospitalization)
  Sender: FDA-Public Use
  Company Number: 2014P1000558

PATIENT
  Age: 66 Year
  Sex: Female

DRUGS (9)
  1. SODIUM POLYSTYRENE SULFONATE [Suspect]
     Route: 048
  2. PREDNISONE [Concomitant]
  3. MYCOPHENOLATE [Concomitant]
  4. MOFETIL [Concomitant]
  5. TACROLIMUS [Concomitant]
  6. COTRIMOXAZOLE [Concomitant]
  7. ESOMEPRAZOLE [Concomitant]
  8. ATENOLOL [Concomitant]
  9. METFORMIN [Concomitant]

REACTIONS (13)
  - Weight decreased [None]
  - Pyrexia [None]
  - Night sweats [None]
  - Abdominal pain lower [None]
  - Ileal ulcer [None]
  - Foreign body [None]
  - Gastrointestinal inflammation [None]
  - Thrombosis [None]
  - Vascular calcification [None]
  - Vascular stenosis [None]
  - Ischaemia [None]
  - Condition aggravated [None]
  - Foreign body reaction [None]
